FAERS Safety Report 9032318 (Version 1)
Quarter: 2013Q1

REPORT INFORMATION
  Report Type: Spontaneous
  Country: US (occurrence: US)
  Receive Date: 20130122
  Receipt Date: 20130122
  Transmission Date: 20140127
  Serious: No
  Sender: FDA-Public Use
  Company Number: US-PFIZER INC-2013024435

PATIENT
  Age: 85 Year
  Sex: Male
  Weight: 90.7 kg

DRUGS (4)
  1. CELEBREX [Suspect]
     Indication: ARTHRITIS
     Dosage: 200 MG, DAILY
     Dates: end: 2007
  2. CELEBREX [Suspect]
     Dosage: 200 MG, DAILY
     Dates: start: 201301
  3. AVODART [Concomitant]
     Indication: PROSTATOMEGALY
     Dosage: 0.5 MG, DAILY
  4. PLAVIX [Concomitant]
     Indication: CEREBROVASCULAR ACCIDENT
     Dosage: 75 MG, DAILY

REACTIONS (1)
  - Wheezing [Not Recovered/Not Resolved]
